FAERS Safety Report 4936704-1 (Version None)
Quarter: 2006Q1

REPORT INFORMATION
  Report Type: 
  Country: None (occurrence: None)
  Receive Date: 20060127
  Receipt Date: 20051114
  Transmission Date: 20060701
  Serious: Yes (Other)
  Sender: FDA-Public Use
  Company Number: 2005156814

PATIENT
  Age: 83 Year
  Sex: Male
  Weight: 84.369 kg

DRUGS (8)
  1. LYRICA [Suspect]
     Indication: NEUROPATHY
     Dosage: 150 MG (75 MG, 2 IN 1 D)
     Dates: start: 20051013
  2. KLONOPIN [Concomitant]
  3. TAMSULOSIN HYDROCHLORIDE (TAMSULOSIN HYDROCHLORIDE) [Concomitant]
  4. TRAMADOL HCL [Concomitant]
  5. ATENOLOL [Concomitant]
  6. PLENDIL [Concomitant]
  7. PLAVIX [Concomitant]
  8. FUROSEMIDE [Concomitant]

REACTIONS (4)
  - DEATH OF SIBLING [None]
  - DIFFICULTY IN WALKING [None]
  - DRUG INEFFECTIVE [None]
  - UNEVALUABLE EVENT [None]
